FAERS Safety Report 20663068 (Version 2)
Quarter: 2022Q2

REPORT INFORMATION
  Report Type: Spontaneous
  Country: US (occurrence: US)
  Receive Date: 20220401
  Receipt Date: 20220406
  Transmission Date: 20220720
  Serious: No
  Sender: FDA-Public Use
  Company Number: US-drreddys-SPO/USA/22/0148044

PATIENT
  Age: 30 Year

DRUGS (1)
  1. BUPRENORPHINE\NALOXONE [Suspect]
     Active Substance: BUPRENORPHINE\NALOXONE
     Indication: Product used for unknown indication
     Dosage: 2 MG/0.5 MG AND 8MG/2MG

REACTIONS (5)
  - Tooth fracture [Unknown]
  - Dental caries [Unknown]
  - Swelling [Unknown]
  - Infection [Unknown]
  - Pain [Unknown]
